FAERS Safety Report 8289730-1 (Version None)
Quarter: 2012Q2

REPORT INFORMATION
  Report Type: 
  Country: None (occurrence: None)
  Receive Date: 20120417
  Receipt Date: 20120412
  Transmission Date: 20120825
  Serious: No
  Sender: FDA-Public Use
  Company Number: US-PFIZER INC-2012091740

PATIENT
  Sex: Female
  Weight: 72.562 kg

DRUGS (1)
  1. IBUPROFEN (ADVIL) [Suspect]
     Indication: SINUS HEADACHE
     Dosage: 400 MG, AS NEEDED
     Route: 048
     Dates: end: 20120402

REACTIONS (2)
  - URTICARIA [None]
  - RASH [None]
